FAERS Safety Report 8933711 (Version 1)
Quarter: 2012Q4

REPORT INFORMATION
  Report Type: 
  Country: FR (occurrence: FR)
  Receive Date: 20121129
  Receipt Date: 20121129
  Transmission Date: 20130627
  Serious: Yes (Hospitalization)
  Sender: FDA-Public Use
  Company Number: FR-SANOFI-AVENTIS-2012SA084705

PATIENT
  Age: 57 Year
  Sex: Female

DRUGS (2)
  1. ARAVA [Suspect]
     Indication: ARTHRITIS RHEUMATOID
     Route: 065
     Dates: start: 2006
  2. HUMIRA [Suspect]
     Indication: ARTHRITIS RHEUMATOID
     Route: 065
     Dates: start: 201105, end: 201206

REACTIONS (1)
  - Psoriasis [Unknown]
